FAERS Safety Report 22192716 (Version 1)
Quarter: 2023Q2

REPORT INFORMATION
  Report Type: Spontaneous
  Country: GB (occurrence: GB)
  Receive Date: 20230410
  Receipt Date: 20230410
  Transmission Date: 20230722
  Serious: Yes (Other)
  Sender: FDA-Public Use
  Company Number: None

PATIENT

DRUGS (1)
  1. OFLOXACIN [Suspect]
     Active Substance: OFLOXACIN
     Indication: Conjunctivitis
     Dosage: 1 DROP IN EACH EYE 4 X A DAY
     Dates: start: 20230321, end: 20230322

REACTIONS (6)
  - Scleral haematoma [Recovering/Resolving]
  - Blindness [Recovering/Resolving]
  - Eyelid irritation [Not Recovered/Not Resolved]
  - Erythema [Recovered/Resolved]
  - Eyelid oedema [Recovered/Resolved]
  - Dry eye [Not Recovered/Not Resolved]

NARRATIVE: CASE EVENT DATE: 20230321
